FAERS Safety Report 10045253 (Version 2)
Quarter: 2014Q1

REPORT INFORMATION
  Report Type: Spontaneous
  Country: CA (occurrence: CA)
  Receive Date: 20140328
  Receipt Date: 20140328
  Transmission Date: 20141002
  Serious: Yes (Hospitalization, Other)
  Sender: FDA-Public Use
  Company Number: CA-009507513-1403CAN006728

PATIENT
  Age: 73 Year
  Sex: Male

DRUGS (3)
  1. COPPERTONE SPORT LOTION SPF30 [Suspect]
     Indication: PROPHYLAXIS
     Dosage: UNK
     Route: 065
  2. ASPIRIN [Concomitant]
     Route: 065
  3. CELEBREX [Concomitant]
     Route: 065

REACTIONS (3)
  - Rash generalised [Unknown]
  - Hypersensitivity [Unknown]
  - Inappropriate schedule of drug administration [Unknown]
